FAERS Safety Report 9009039 (Version 2)
Quarter: 2013Q1

REPORT INFORMATION
  Report Type: Report from Study
  Country: US (occurrence: US)
  Receive Date: 20130111
  Receipt Date: 20130125
  Transmission Date: 20140127
  Serious: No
  Sender: FDA-Public Use
  Company Number: US-VERTEX PHARMACEUTICALS INC.-2013-000461

PATIENT
  Sex: Female
  Weight: 64 kg

DRUGS (5)
  1. VX-950 (TELAPREVIR) [Suspect]
     Indication: HEPATITIS C
     Dosage: 750 MG, TID
     Route: 048
  2. PEGASYS [Suspect]
     Indication: HEPATITIS C
     Dosage: 180 ?G, UNK
  3. RIBAVIRIN [Suspect]
     Indication: HEPATITIS C
     Dosage: 200 MG, UNK
  4. MULTIVITAMIN                       /00097801/ [Concomitant]
  5. CALCIUM + D DUETTO [Concomitant]

REACTIONS (3)
  - Influenza like illness [Unknown]
  - Sinus congestion [Unknown]
  - Chills [Unknown]
